FAERS Safety Report 13335699 (Version 1)
Quarter: 2017Q1

REPORT INFORMATION
  Report Type: Spontaneous
  Country: US (occurrence: US)
  Receive Date: 20170315
  Receipt Date: 20170315
  Transmission Date: 20170428
  Serious: No
  Sender: FDA-Public Use
  Company Number: US-TEVA-726970ACC

PATIENT
  Age: 32 Year
  Sex: Male

DRUGS (1)
  1. BUPRENORPHINE W/NALOXONE [Suspect]
     Active Substance: BUPRENORPHINE HYDROCHLORIDE\NALOXONE HYDROCHLORIDE
     Indication: FOOD CRAVING
     Route: 060

REACTIONS (3)
  - Muscle spasms [Unknown]
  - Abdominal discomfort [Unknown]
  - Drug ineffective [Unknown]
